FAERS Safety Report 7755233-3 (Version None)
Quarter: 2011Q3

REPORT INFORMATION
  Report Type: 
  Country: None (occurrence: None)
  Receive Date: 20110914
  Receipt Date: 20110830
  Transmission Date: 20111222
  Serious: Yes (Hospitalization)
  Sender: FDA-Public Use
  Company Number: 2011AP001389

PATIENT
  Age: 22 Year
  Sex: Female

DRUGS (14)
  1. ENALAPRIL MALEATE [Concomitant]
  2. WARFARN (WARFARIN) [Concomitant]
  3. DOXYCYCLINE [Concomitant]
  4. METHOTREXATE [Concomitant]
  5. OMEPRAZOLE [Concomitant]
  6. ONDANSETRON [Concomitant]
  7. PREDNISOLONE [Concomitant]
  8. CALCIUM CARBONATE [Concomitant]
  9. SODIUM BICARBONATE IN PLASTIC CONTAINER [Suspect]
  10. CANDESARTAN CILEXETIL [Concomitant]
  11. FOLIC ACID [Concomitant]
  12. ALENDRONATE SODIUM [Suspect]
  13. MYCOPHENOLATE MOFETIL [Suspect]
     Indication: WEGENER'S GRANULOMATOSIS
     Dosage: 1 G; TID
     Dates: start: 20070201
  14. DAPSONE [Suspect]

REACTIONS (2)
  - DRUG EFFECT DECREASED [None]
  - WEGENER'S GRANULOMATOSIS [None]
